FAERS Safety Report 8343718-0 (Version None)
Quarter: 2012Q1

REPORT INFORMATION
  Report Type: 
  Country: None (occurrence: None)
  Receive Date: 20120330
  Receipt Date: 20110325
  Transmission Date: 20120608
  Serious: Yes (Hospitalization)
  Sender: FDA-Public Use
  Company Number: PHHY2011US25411

PATIENT
  Sex: Male

DRUGS (7)
  1. HYDROCHLOROTHIAZIDE [Concomitant]
  2. ALPHA-ADRENOCEPTOR BLOCKING AGENTS [Concomitant]
  3. OMEPRAZOLE [Concomitant]
  4. SYNTHROID [Concomitant]
  5. EXELON [Suspect]
     Indication: DEMENTIA WITH LEWY BODIES
     Dosage: 4.6 MG, DAILY, TRANSDERMAL
     Route: 062
     Dates: start: 20110221, end: 20110226
  6. ANTIHYPERTENSIVE DRUGS [Concomitant]
  7. TERAZESIAN [Concomitant]

REACTIONS (1)
  - BLOOD PRESSURE INCREASED [None]
